FAERS Safety Report 25840262 (Version 1)
Quarter: 2025Q3

REPORT INFORMATION
  Report Type: Report from Study
  Country: CA (occurrence: CA)
  Receive Date: 20250924
  Receipt Date: 20250924
  Transmission Date: 20251020
  Serious: Yes (Death)
  Sender: ABBVIE
  Company Number: CA-ABBVIE-6473548

PATIENT
  Sex: Male

DRUGS (1)
  1. VENCLEXTA [Suspect]
     Active Substance: VENETOCLAX
     Indication: Chronic lymphocytic leukaemia
     Dosage: FORM STRENGTH 100MG
     Route: 048
     Dates: start: 20190912

REACTIONS (1)
  - Death [Fatal]
